FAERS Safety Report 25565394 (Version 1)
Quarter: 2025Q3

REPORT INFORMATION
  Report Type: Report from Study
  Country: US (occurrence: US)
  Receive Date: 20250716
  Receipt Date: 20250716
  Transmission Date: 20251020
  Serious: No
  Sender: SUNOVION
  Company Number: US-SUMITOMO PHARMA SWITZERLAND GMBH-2025SPA002076

PATIENT

DRUGS (3)
  1. ORGOVYX [Suspect]
     Active Substance: RELUGOLIX
     Indication: Prostate cancer
     Dosage: 240 MG, 2 TABLETS QD
     Route: 048
     Dates: start: 20250131
  2. ERLEADA [Concomitant]
     Active Substance: APALUTAMIDE
     Indication: Prostate cancer
     Dosage: 240 MG, QD
     Route: 048
     Dates: start: 20250131
  3. ERLEADA [Concomitant]
     Active Substance: APALUTAMIDE
     Route: 048

REACTIONS (4)
  - Asthenia [Unknown]
  - Feeling hot [Unknown]
  - Off label use [Unknown]
  - Incorrect dose administered [Unknown]
